FAERS Safety Report 5836220-9 (Version None)
Quarter: 2008Q3

REPORT INFORMATION
  Report Type: 
  Country: None (occurrence: None)
  Receive Date: 20080805
  Receipt Date: 20080723
  Transmission Date: 20090109
  Serious: Yes (Other)
  Sender: FDA-Public Use
  Company Number: 2008S1013017

PATIENT
  Age: 70 Year
  Sex: Female
  Weight: 47.6277 kg

DRUGS (1)
  1. FENTANYL TRANSDERMAL SYSTEM [Suspect]
     Indication: CANCER PAIN
     Dosage: 25 UG; EVERY HOUR;  TRANSDERMAL
     Route: 062
     Dates: start: 20070101

REACTIONS (2)
  - DRUG WITHDRAWAL SYNDROME [None]
  - PHARMACEUTICAL PRODUCT COMPLAINT [None]
